FAERS Safety Report 9521003 (Version 2)
Quarter: 2013Q4

REPORT INFORMATION
  Report Type: Spontaneous
  Country: CA (occurrence: CA)
  Receive Date: 20130913
  Receipt Date: 20131101
  Transmission Date: 20140711
  Serious: Yes (Death, Life-Threatening, Hospitalization, Other)
  Sender: FDA-Public Use
  Company Number: CA-BAYER-2013-110551

PATIENT
  Age: 36 Year
  Sex: Female
  Weight: 136.5 kg

DRUGS (1)
  1. YASMIN 28 [Suspect]
     Indication: HIRSUTISM
     Dosage: 1 DF, QD
     Route: 048
     Dates: start: 2012

REACTIONS (2)
  - Pulmonary embolism [Fatal]
  - Influenza [Fatal]
